FAERS Safety Report 20526174 (Version 1)
Quarter: 2022Q1

REPORT INFORMATION
  Report Type: Spontaneous
  Country: US (occurrence: None)
  Receive Date: 20220225
  Receipt Date: 20220225
  Transmission Date: 20220423
  Serious: Yes (Other)
  Sender: FDA-Public Use
  Company Number: None

PATIENT
  Age: 47 Year
  Sex: Male
  Weight: 122.85 kg

DRUGS (2)
  1. LEUCOVORIN CALCIUM [Suspect]
     Active Substance: LEUCOVORIN CALCIUM
     Dosage: OTHER FREQUENCY : EVERY 14 DAYS;?
     Route: 042
  2. DEXTROSE [Concomitant]
     Active Substance: DEXTROSE

REACTIONS (5)
  - Infusion related reaction [None]
  - Chest discomfort [None]
  - Pruritus [None]
  - Erythema [None]
  - Erythema [None]

NARRATIVE: CASE EVENT DATE: 20220225
